FAERS Safety Report 18977511 (Version 1)
Quarter: 2021Q1

REPORT INFORMATION
  Report Type: Report from Study
  Country: US (occurrence: US)
  Receive Date: 20210306
  Receipt Date: 20210306
  Transmission Date: 20210420
  Serious: Yes (Death, Hospitalization, Congenital Anomaly, Other)
  Sender: FDA-Public Use
  Company Number: US-TORRENT-00010949

PATIENT
  Age: 2 Year
  Sex: Female

DRUGS (1)
  1. LACTULOSE. [Suspect]
     Active Substance: LACTULOSE
     Indication: PRODUCT USED FOR UNKNOWN INDICATION
     Dosage: EVERY 4 H VIA GASTRIC TUBE
     Route: 048

REACTIONS (6)
  - Status epilepticus [Unknown]
  - Toxicity to various agents [Fatal]
  - Medication error [Unknown]
  - Shock [Unknown]
  - Electrolyte imbalance [Fatal]
  - Encephalopathy [Unknown]
